FAERS Safety Report 7602902-1 (Version None)
Quarter: 2011Q3

REPORT INFORMATION
  Report Type: 
  Country: None (occurrence: None)
  Receive Date: 20110711
  Receipt Date: 20110711
  Transmission Date: 20111222
  Serious: Yes (Other)
  Sender: FDA-Public Use
  Company Number: None

PATIENT
  Sex: Male
  Weight: 90.5 kg

DRUGS (1)
  1. RITUXIMAB [Suspect]
     Dosage: 7995 MG IV DRIP
     Route: 041

REACTIONS (6)
  - DRUG HYPERSENSITIVITY [None]
  - UNEVALUABLE EVENT [None]
  - REFUSAL OF TREATMENT BY PATIENT [None]
  - MYOCARDIAL INFARCTION [None]
  - CHEST DISCOMFORT [None]
  - CHEST PAIN [None]
